FAERS Safety Report 9776373 (Version 2)
Quarter: 2013Q4

REPORT INFORMATION
  Report Type: Spontaneous
  Country: US (occurrence: US)
  Receive Date: 20131220
  Receipt Date: 20131220
  Transmission Date: 20140711
  Serious: Yes (Hospitalization, Other)
  Sender: FDA-Public Use
  Company Number: US-ELI_LILLY_AND_COMPANY-US201307003356

PATIENT
  Sex: Female

DRUGS (8)
  1. HUMULIN NPH [Suspect]
     Indication: DIABETES MELLITUS
     Dosage: 87 U, EACH MORNING
     Route: 065
  2. HUMULIN NPH [Suspect]
     Dosage: 70 U, EACH EVENING
     Route: 065
  3. HUMULIN NPH [Suspect]
     Dosage: 90 U, EACH MORNING
     Route: 065
  4. HUMULIN NPH [Suspect]
     Dosage: 70 U, EACH EVENING
     Route: 065
  5. HUMALOG LISPRO [Suspect]
     Indication: DIABETES MELLITUS
     Route: 065
  6. NOVOLOG [Concomitant]
     Dosage: UNK UNK, EACH EVENING
  7. PREMARIN [Concomitant]
     Dosage: UNK
     Dates: start: 1982
  8. SYSTANE [Concomitant]
     Dosage: UNK, EACH EVENING

REACTIONS (9)
  - Cerebrovascular accident [Unknown]
  - Osteoarthritis [Unknown]
  - Cataract [Not Recovered/Not Resolved]
  - Blood glucose increased [Unknown]
  - Musculoskeletal pain [Not Recovered/Not Resolved]
  - Gait disturbance [Not Recovered/Not Resolved]
  - Memory impairment [Unknown]
  - Underdose [Unknown]
  - Incorrect dose administered [Unknown]
